FAERS Safety Report 11361859 (Version 3)
Quarter: 2016Q3

REPORT INFORMATION
  Report Type: Spontaneous
  Country: CA (occurrence: CA)
  Receive Date: 20150810
  Receipt Date: 20160712
  Transmission Date: 20161109
  Serious: Yes (Hospitalization)
  Sender: FDA-Public Use
  Company Number: CA-PFIZER INC-2014272575

PATIENT
  Age: 81 Year
  Sex: Female

DRUGS (2)
  1. XALKORI [Suspect]
     Active Substance: CRIZOTINIB
     Indication: NON-SMALL CELL LUNG CANCER
     Dosage: 250 MG, 2X/DAY
     Dates: start: 20140927, end: 201409
  2. XALKORI [Suspect]
     Active Substance: CRIZOTINIB
     Dosage: 250 MG, 1X/DAY
     Dates: start: 20140930

REACTIONS (15)
  - Vomiting [Recovered/Resolved]
  - Abdominal pain [Not Recovered/Not Resolved]
  - Peripheral swelling [Not Recovered/Not Resolved]
  - Photophobia [Recovered/Resolved]
  - Constipation [Not Recovered/Not Resolved]
  - Syncope [Unknown]
  - Disease progression [Not Recovered/Not Resolved]
  - Diarrhoea [Recovered/Resolved]
  - Photopsia [Recovered/Resolved]
  - Nausea [Recovered/Resolved]
  - Non-small cell lung cancer [Not Recovered/Not Resolved]
  - Malaise [Recovered/Resolved]
  - Dizziness [Unknown]
  - Cough [Unknown]
  - Dysphonia [Unknown]

NARRATIVE: CASE EVENT DATE: 2014
